FAERS Safety Report 15982337 (Version 1)
Quarter: 2019Q1

REPORT INFORMATION
  Report Type: Spontaneous
  Country: JP (occurrence: JP)
  Receive Date: 20190219
  Receipt Date: 20190219
  Transmission Date: 20190418
  Serious: Yes (Hospitalization)
  Sender: FDA-Public Use
  Company Number: JP-JNJFOC-20181013967

PATIENT
  Age: 61 Year
  Sex: Male
  Weight: 57.8 kg

DRUGS (7)
  1. XEPLION [Suspect]
     Active Substance: PALIPERIDONE PALMITATE
     Indication: SCHIZOPHRENIA
     Route: 030
     Dates: start: 20180821, end: 20180821
  2. AKINETON [Concomitant]
     Active Substance: BIPERIDEN HYDROCHLORIDE
     Indication: SCHIZOPHRENIA
     Dosage: BIPERIDEN LACTATE
     Route: 065
  3. XEPLION [Suspect]
     Active Substance: PALIPERIDONE PALMITATE
     Indication: SCHIZOPHRENIA
     Route: 030
  4. XEPLION [Suspect]
     Active Substance: PALIPERIDONE PALMITATE
     Indication: SCHIZOPHRENIA
     Route: 030
     Dates: start: 20180502, end: 20180502
  5. XEPLION [Suspect]
     Active Substance: PALIPERIDONE PALMITATE
     Indication: SCHIZOPHRENIA
     Route: 030
     Dates: start: 20180918, end: 20180918
  6. SERENACE [Concomitant]
     Active Substance: HALOPERIDOL
     Indication: SCHIZOPHRENIA
     Dosage: HALOPERIDOL
     Route: 065
     Dates: start: 20180919
  7. XEPLION [Suspect]
     Active Substance: PALIPERIDONE PALMITATE
     Indication: SCHIZOPHRENIA
     Dosage: PALIPERIDONE PALMITATE: 25MG
     Route: 030
     Dates: start: 20180530, end: 20180530

REACTIONS (4)
  - Psychiatric symptom [Recovered/Resolved]
  - Malaise [Unknown]
  - Drug effect incomplete [Not Recovered/Not Resolved]
  - Stupor [Recovered/Resolved]

NARRATIVE: CASE EVENT DATE: 2018
